FAERS Safety Report 24154486 (Version 1)
Quarter: 2024Q3

REPORT INFORMATION
  Report Type: Spontaneous
  Country: US (occurrence: US)
  Receive Date: 20240731
  Receipt Date: 20240731
  Transmission Date: 20241016
  Serious: Yes (Life-Threatening, Hospitalization, Other)
  Sender: CIPLA
  Company Number: US-CIPLA LTD.-2024US07922

PATIENT

DRUGS (14)
  1. BUDESONIDE [Suspect]
     Active Substance: BUDESONIDE
     Indication: Acute graft versus host disease
     Dosage: UNK
     Route: 065
     Dates: start: 202209
  2. PREDNISONE [Suspect]
     Active Substance: PREDNISONE
     Indication: Acute graft versus host disease
     Dosage: UNK
     Route: 065
     Dates: start: 202209
  3. TACROLIMUS [Suspect]
     Active Substance: TACROLIMUS
     Indication: Acute graft versus host disease
     Dosage: UNK
     Route: 065
     Dates: start: 202209
  4. BECLOMETHASONE [Suspect]
     Active Substance: BECLOMETHASONE
     Indication: Acute graft versus host disease
     Dosage: UNK
     Route: 065
     Dates: start: 202209
  5. LETERMOVIR [Concomitant]
     Active Substance: LETERMOVIR
     Indication: Antiviral prophylaxis
     Dosage: UNK
     Route: 065
  6. DECITABINE [Concomitant]
     Active Substance: DECITABINE
     Indication: Myelodysplastic syndrome with multilineage dysplasia
     Dosage: UNK
     Route: 065
  7. DECITABINE [Concomitant]
     Active Substance: DECITABINE
     Indication: Disease progression
  8. CEDAZURIDINE [Concomitant]
     Active Substance: CEDAZURIDINE
     Indication: Myelodysplastic syndrome with multilineage dysplasia
     Dosage: UNK
     Route: 065
  9. CEDAZURIDINE [Concomitant]
     Active Substance: CEDAZURIDINE
     Indication: Disease progression
  10. MARIBAVIR [Concomitant]
     Active Substance: MARIBAVIR
     Indication: Antiviral prophylaxis
     Dosage: UNK
     Route: 065
  11. FOSCARNET [Concomitant]
     Active Substance: FOSCARNET
     Indication: Antiviral prophylaxis
     Dosage: UNK
     Route: 065
  12. PENTAMIDINE [Concomitant]
     Active Substance: PENTAMIDINE
     Indication: Prophylaxis
     Dosage: UNK
  13. CYTARABINE [Concomitant]
     Active Substance: CYTARABINE
     Indication: Disease progression
     Dosage: UNK
     Route: 065
  14. VENETOCLAX [Concomitant]
     Active Substance: VENETOCLAX
     Indication: Disease progression
     Dosage: UNK
     Route: 065

REACTIONS (3)
  - Acute respiratory failure [Recovering/Resolving]
  - Pneumocystis jirovecii pneumonia [Recovering/Resolving]
  - Atypical pneumonia [Recovering/Resolving]

NARRATIVE: CASE EVENT DATE: 20240201
